FAERS Safety Report 12244972 (Version 1)
Quarter: 2016Q2

REPORT INFORMATION
  Report Type: Report from Study
  Country: MX (occurrence: MX)
  Receive Date: 20160407
  Receipt Date: 20160407
  Transmission Date: 20160815
  Serious: Yes (Other)
  Sender: FDA-Public Use
  Company Number: PHHY2016MX038446

PATIENT
  Age: 73 Year
  Sex: Male

DRUGS (2)
  1. PISALPRA [Concomitant]
     Indication: PRODUCT USED FOR UNKNOWN INDICATION
     Route: 065
  2. CO-DIOVAN [Suspect]
     Active Substance: HYDROCHLOROTHIAZIDE\VALSARTAN
     Indication: HYPERTENSION
     Dosage: 1 DF (VALSARTAN 160/ HYDROCHLOROTHIAZIDE 12.5 MG), QD
     Route: 065

REACTIONS (6)
  - Peripheral vascular disorder [Unknown]
  - Spinal compression fracture [Recovering/Resolving]
  - Pigmentation disorder [Recovered/Resolved]
  - Spondylitis [Unknown]
  - Insomnia [Recovering/Resolving]
  - Venous occlusion [Recovering/Resolving]

NARRATIVE: CASE EVENT DATE: 201512
